FAERS Safety Report 21712989 (Version 4)
Quarter: 2023Q1

REPORT INFORMATION
  Report Type: Spontaneous
  Country: NL (occurrence: NL)
  Receive Date: 20221212
  Receipt Date: 20230303
  Transmission Date: 20230417
  Serious: Yes (Other)
  Sender: FDA-Public Use
  Company Number: NL-BAYER-2022A165870

PATIENT
  Age: 47 Year
  Sex: Female

DRUGS (2)
  1. MIRENA [Suspect]
     Active Substance: LEVONORGESTREL
     Indication: Contraceptive implant
     Dosage: 20?G/DAY
     Route: 015
     Dates: start: 20220919
  2. MIRENA [Suspect]
     Active Substance: LEVONORGESTREL
     Indication: Heavy menstrual bleeding

REACTIONS (9)
  - Device breakage [Not Recovered/Not Resolved]
  - Genital haemorrhage [None]
  - Device expulsion [Not Recovered/Not Resolved]
  - Complication of device removal [None]
  - Device difficult to use [Unknown]
  - Product quality issue [Unknown]
  - Vaginal haemorrhage [Recovered/Resolved]
  - Complication of device insertion [Recovered/Resolved]
  - Procedural pain [Recovered/Resolved]

NARRATIVE: CASE EVENT DATE: 20220919
